FAERS Safety Report 21312874 (Version 1)
Quarter: 2022Q3

REPORT INFORMATION
  Report Type: Spontaneous
  Country: JP (occurrence: JP)
  Receive Date: 20220909
  Receipt Date: 20220909
  Transmission Date: 20221026
  Serious: Yes (Other)
  Sender: FDA-Public Use
  Company Number: JP-ELI_LILLY_AND_COMPANY-JP202208008535

PATIENT
  Age: 52 Year
  Sex: Female

DRUGS (4)
  1. BAQSIMI [Suspect]
     Active Substance: GLUCAGON
     Indication: Hypoglycaemia
     Route: 045
  2. FIASP [Concomitant]
     Active Substance: INSULIN ASPART
     Dosage: 8 INTERNATIONAL UNIT, EACH EVENING
  3. NOVOLIN R [Concomitant]
     Active Substance: INSULIN HUMAN
     Dosage: 6 INTERNATIONAL UNIT, BID
  4. TRESIBA [Concomitant]
     Active Substance: INSULIN DEGLUDEC
     Dosage: 8 INTERNATIONAL UNIT, EACH MORNING

REACTIONS (2)
  - Hypoglycaemia [Unknown]
  - Expired product administered [Unknown]

NARRATIVE: CASE EVENT DATE: 20220816
